FAERS Safety Report 18468480 (Version 1)
Quarter: 2020Q4

REPORT INFORMATION
  Report Type: Spontaneous
  Country: GB (occurrence: GB)
  Receive Date: 20201105
  Receipt Date: 20201105
  Transmission Date: 20210114
  Serious: Yes (Other)
  Sender: FDA-Public Use
  Company Number: GB-PFIZER INC-2020427124

PATIENT
  Age: 82 Year
  Sex: Female

DRUGS (5)
  1. DOXAZOSIN [Concomitant]
     Active Substance: DOXAZOSIN MESYLATE
     Dosage: 2 MG, 1X/DAY
  2. BENDROFLUMETHIAZIDE [Concomitant]
     Active Substance: BENDROFLUMETHIAZIDE
     Dosage: 2.5 MG, 1X/DAY (IN THE MORNING)
  3. LORAZEPAM. [Suspect]
     Active Substance: LORAZEPAM
     Dosage: UP TO ONCE AT NIGHT (AS NECESSARY)
  4. PARACETAMOL [Concomitant]
     Active Substance: ACETAMINOPHEN
     Dosage: 1-2 UP TO FOUR TIMES A DAY (AS NECESSARY)
  5. PERINDOPRIL [Concomitant]
     Active Substance: PERINDOPRIL
     Dosage: 8 MG, 1X/DAY (IN THE MORNING)

REACTIONS (1)
  - Drug withdrawal convulsions [Unknown]
